APPROVED DRUG PRODUCT: AZITHROMYCIN
Active Ingredient: AZITHROMYCIN
Strength: EQ 500MG BASE/VIAL
Dosage Form/Route: INJECTABLE;INJECTION
Application: A203412 | Product #001 | TE Code: AP
Applicant: SLATE RUN PHARMACEUTICALS LLC
Approved: Oct 9, 2018 | RLD: No | RS: No | Type: RX